FAERS Safety Report 8993808 (Version 1)
Quarter: 2013Q1

REPORT INFORMATION
  Report Type: Spontaneous
  Country: US (occurrence: US)
  Receive Date: 20130102
  Receipt Date: 20130102
  Transmission Date: 20140127
  Serious: No
  Sender: FDA-Public Use
  Company Number: US-AMGEN-USASP2012081533

PATIENT
  Age: 59 Year
  Sex: Female

DRUGS (15)
  1. ENBREL [Suspect]
     Indication: PSORIATIC ARTHROPATHY
     Dosage: 50 MG, QWK
     Route: 058
     Dates: start: 2008
  2. LEVOTHYROXINE [Concomitant]
     Dosage: 125 MCG1 TABLET BY MOUTH EVERY DAY
     Route: 048
  3. MUPIROCIN CALCIUM [Concomitant]
     Dosage: UNK UNK, BID
  4. CYTOMEL [Concomitant]
     Dosage: 5 MCG1 TAB BY MOUTH EVERY DAY)QD
     Route: 048
  5. LISINOPRIL [Concomitant]
     Dosage: 40 MG, UNK
     Route: 048
  6. TRIAMTERENE AND HYDROCHLOROTHIAZID [Concomitant]
     Dosage: 75-50 MG PER TABLET (0.5 TABLETS BY MOUTH EVERY DAY)
     Route: 048
  7. PHENTERMINE [Concomitant]
     Dosage: 37.5 MG,( 0.5-1 TABS BY MOUTH DAILY AS NEEDED)
     Route: 048
  8. POTASSIUM CHLORIDE [Concomitant]
     Dosage: 1 TABLET BY MOUTH EVERY DAY.
     Route: 048
  9. METFORMIN [Concomitant]
     Dosage: 500 MG, 1 TAB BY MOUTH 2 TIMES DAILY
     Route: 048
  10. TYLENOL /00020001/ [Concomitant]
     Dosage: 325 MG AS NEEDED
     Route: 048
  11. FOLIC ACID [Concomitant]
     Dosage: 1 MG, QD 1 TABLET BY MOUTH EVERY DAY
     Route: 048
  12. ASPIRIN CHILDREN [Concomitant]
     Dosage: 81 MG,(1 TABLET BY MOUTH EVERY DAY)
     Route: 048
  13. CLINDAMYCIN [Concomitant]
     Dosage: 300 MG (CAPSULE BY MOUTH 3 TIMES DAILY)
     Route: 048
  14. OMEPRAZOLE [Concomitant]
     Dosage: 20 MG1 CAPSULE BY MOUTH EVERY DAY
     Route: 048
  15. CALCIUM CARBONATE AND VITAMIN D [Concomitant]
     Dosage: 500-400 MG UNIT I TAB BY MOUTH 2 TIMES DAILY
     Route: 048

REACTIONS (11)
  - Sinusitis [Recovered/Resolved]
  - Arthralgia [Unknown]
  - Synovial cyst [Unknown]
  - Hot flush [Unknown]
  - Bursitis [Unknown]
  - Pain in extremity [Unknown]
  - Pain [Unknown]
  - Musculoskeletal pain [Unknown]
  - Dactylitis [Unknown]
  - Lipoma [Unknown]
  - Hypercalcaemia [Unknown]
